FAERS Safety Report 6195450-X (Version None)
Quarter: 2009Q2

REPORT INFORMATION
  Report Type: 
  Country: None (occurrence: None)
  Receive Date: 20090519
  Receipt Date: 20090507
  Transmission Date: 20091009
  Serious: Yes (Hospitalization)
  Sender: FDA-Public Use
  Company Number: JP-AVENTIS-200913728GDDC

PATIENT
  Age: 84 Year
  Sex: Female

DRUGS (12)
  1. MINIRIN DDAVP [Suspect]
     Route: 045
     Dates: start: 20080731, end: 20080813
  2. MINIRIN DDAVP [Suspect]
     Route: 045
     Dates: start: 20080814, end: 20080902
  3. CRAVIT [Suspect]
     Indication: URINARY TRACT INFECTION
     Route: 048
     Dates: start: 20080828, end: 20080902
  4. VASOMET [Concomitant]
     Indication: NOCTURIA
     Route: 048
     Dates: start: 20080717, end: 20080902
  5. KULILEL [Concomitant]
     Indication: URINARY TRACT INFECTION
     Route: 048
     Dates: start: 20080814, end: 20080821
  6. NU-LOTAN [Concomitant]
  7. ZANTAC [Concomitant]
  8. ALUMINIUM COMPOUNDS [Concomitant]
     Route: 048
  9. ALOSENN                            /00476901/ [Concomitant]
     Route: 048
  10. CHOREITOU [Concomitant]
  11. SPIRIVA [Concomitant]
     Route: 055
  12. GEMZAR [Concomitant]
     Route: 042

REACTIONS (5)
  - CONVULSION [None]
  - DRUG INTERACTION [None]
  - INAPPROPRIATE ANTIDIURETIC HORMONE SECRETION [None]
  - URINARY TRACT INFECTION [None]
  - WATER INTOXICATION [None]
